FAERS Safety Report 7962176-9 (Version None)
Quarter: 2011Q4

REPORT INFORMATION
  Report Type: 
  Country: None (occurrence: None)
  Receive Date: 20111207
  Receipt Date: 20111201
  Transmission Date: 20120403
  Serious: Yes (Hospitalization, Congenital Anomaly, Other)
  Sender: FDA-Public Use
  Company Number: US-PFIZER INC-2011159902

PATIENT
  Sex: Male
  Weight: 1 kg

DRUGS (4)
  1. ZOLOFT [Suspect]
     Dosage: UNK,
     Route: 064
  2. MULTI-VITAMINS [Concomitant]
     Dosage: UNK,
     Route: 064
  3. EFFEXOR [Suspect]
     Dosage: UNK,
     Route: 064
  4. INSULIN [Concomitant]
     Dosage: UNK,
     Route: 064

REACTIONS (21)
  - ACUTE RESPIRATORY FAILURE [None]
  - RIB DEFORMITY [None]
  - CARDIOMEGALY [None]
  - PATENT DUCTUS ARTERIOSUS [None]
  - INGUINAL HERNIA [None]
  - HYDRONEPHROSIS [None]
  - HEMIVERTEBRA [None]
  - PULMONARY VALVE STENOSIS [None]
  - TRICUSPID VALVE INCOMPETENCE [None]
  - MITRAL VALVE INCOMPETENCE [None]
  - MATERNAL EXPOSURE TIMING UNSPECIFIED [None]
  - TRICUSPID VALVE STENOSIS [None]
  - PLEURAL EFFUSION [None]
  - FALLOT'S TETRALOGY [None]
  - VENTRICULAR SEPTAL DEFECT [None]
  - AORTIC VALVE INCOMPETENCE [None]
  - VENTRICULAR HYPERTROPHY [None]
  - UMBILICAL HERNIA [None]
  - ATRIAL SEPTAL DEFECT [None]
  - PULMONARY VALVE INCOMPETENCE [None]
  - GASTROOESOPHAGEAL REFLUX DISEASE [None]
